FAERS Safety Report 5093597-2 (Version None)
Quarter: 2006Q3

REPORT INFORMATION
  Report Type: 
  Country: None (occurrence: None)
  Receive Date: 20060829
  Receipt Date: 20060821
  Transmission Date: 20061208
  Serious: Yes (Death)
  Sender: FDA-Public Use
  Company Number: KADN20060032

PATIENT
  Sex: Female

DRUGS (4)
  1. KADIAN [Suspect]
     Indication: BACK PAIN
     Dosage: 60 MG DAILY PO
     Route: 048
  2. AMITRIPTYLINE 75 MG [Suspect]
     Indication: DEPRESSION
     Dosage: PO             YEARS
     Route: 048
  3. LEXAPRO [Suspect]
     Indication: DEPRESSION
     Dosage: PO     YEARS
     Route: 048
  4. VALIUM [Suspect]
     Indication: DEPRESSION
     Dosage: PO   YEARS
     Route: 048

REACTIONS (1)
  - MULTIPLE DRUG OVERDOSE [None]
